FAERS Safety Report 5311459-X (Version None)
Quarter: 2007Q1

REPORT INFORMATION
  Report Type: 
  Country: None (occurrence: None)
  Receive Date: 20070201
  Receipt Date: 20061005
  Transmission Date: 20070707
  Serious: No
  Sender: FDA-Public Use
  Company Number: 257695

PATIENT
  Age: 81 Year
  Sex: Male
  Weight: 71.2 kg

DRUGS (3)
  1. LEVEMIR [Suspect]
     Indication: INSULIN-REQUIRING TYPE II DIABETES MELLITUS
     Dosage: 20 IU, QD, SUBCUTANEOUS
     Route: 058
     Dates: start: 20060601
  2. NOVOLOG FLEXPEN (INSULIN ASPART) SOLUTION FOR INJECTION [Concomitant]
  3. NOVOFINE 30 (NEEDLE) [Concomitant]

REACTIONS (2)
  - BLOOD GLUCOSE FLUCTUATION [None]
  - STOMACH DISCOMFORT [None]
